FAERS Safety Report 5043040-4 (Version None)
Quarter: 2006Q2

REPORT INFORMATION
  Report Type: 
  Country: None (occurrence: None)
  Receive Date: 20060628
  Receipt Date: 20060619
  Transmission Date: 20061013
  Serious: Yes (Death)
  Sender: FDA-Public Use
  Company Number: 200611572GDS

PATIENT
  Age: 66 Year
  Sex: Female
  Weight: 90 kg

DRUGS (7)
  1. SORAFENIB [Suspect]
     Indication: RENAL CELL CARCINOMA STAGE UNSPECIFIED
     Dosage: 600 MG, TOTAL DAILY, ORAL
     Route: 048
     Dates: start: 20060322
  2. GLUCOPHAGE [Concomitant]
  3. AVANDIA [Concomitant]
  4. HYDROCORTONE [HYDROCORTISONE] [Concomitant]
  5. FOSICOMB [Concomitant]
  6. FOSITENS [Concomitant]
  7. ASTONIN H [Concomitant]

REACTIONS (4)
  - ARRHYTHMIA [None]
  - DISEASE PROGRESSION [None]
  - HAEMORRHAGE [None]
  - METASTASIS [None]
